FAERS Safety Report 5812615-4 (Version None)
Quarter: 2008Q3

REPORT INFORMATION
  Report Type: 
  Country: None (occurrence: None)
  Receive Date: 20080714
  Receipt Date: 20080714
  Transmission Date: 20090109
  Serious: Yes (Life-Threatening, Other)
  Sender: FDA-Public Use
  Company Number: None

PATIENT
  Weight: 39.9165 kg

DRUGS (1)
  1. RAZADYNE ER [Suspect]
     Indication: DEMENTIA
     Dates: start: 20061023, end: 20080210

REACTIONS (12)
  - ABDOMINAL PAIN [None]
  - ADVERSE REACTION [None]
  - DEPRESSION [None]
  - DIARRHOEA [None]
  - DIZZINESS [None]
  - HEADACHE [None]
  - HIP FRACTURE [None]
  - HYPERSOMNIA [None]
  - NAUSEA [None]
  - URINARY TRACT INFECTION [None]
  - VOMITING [None]
  - WEIGHT DECREASED [None]
